FAERS Safety Report 7410409-X (Version None)
Quarter: 2011Q2

REPORT INFORMATION
  Report Type: 
  Country: None (occurrence: None)
  Receive Date: 20110412
  Receipt Date: 20110405
  Transmission Date: 20111010
  Serious: Yes (Other)
  Sender: FDA-Public Use
  Company Number: US-AMGEN-US364106

PATIENT
  Age: 57 Year
  Sex: Female
  Weight: 89.3 kg

DRUGS (11)
  1. NPLATE [Suspect]
     Dosage: 1 A?G/KG, QWK
     Route: 058
  2. FLUOXETINE [Concomitant]
     Dosage: 40 MG, QD
  3. CORTICOSTEROID NOS [Concomitant]
     Dosage: UNK UNK, UNK
     Dates: start: 20050801
  4. PREDNISONE [Concomitant]
     Dosage: UNK UNK, QD
  5. OS-CAL [Concomitant]
     Dosage: UNK UNK, QD
  6. HYDROCHLOROTHIAZIDE [Concomitant]
     Dosage: 12.5 MG, QD
  7. NPLATE [Suspect]
     Indication: IDIOPATHIC THROMBOCYTOPENIC PURPURA
     Dosage: 5 A?G/KG, QWK
     Route: 058
     Dates: start: 20080529, end: 20090402
  8. INSULIN GLARGINE [Concomitant]
  9. MULTI-VITAMINS [Concomitant]
     Dosage: UNK UNK, QD
  10. NPLATE [Suspect]
     Dosage: 0.1 A?G/KG, UNK
  11. INSULIN ASPART [Concomitant]

REACTIONS (4)
  - PAIN IN EXTREMITY [None]
  - COUGH [None]
  - THERAPEUTIC RESPONSE INCREASED [None]
  - RIB FRACTURE [None]
